FAERS Safety Report 6848712-4 (Version None)
Quarter: 2010Q3

REPORT INFORMATION
  Report Type: 
  Country: None (occurrence: None)
  Receive Date: 20100716
  Receipt Date: 20070905
  Transmission Date: 20110219
  Serious: No
  Sender: FDA-Public Use
  Company Number: US-PFIZER INC-2007075211

PATIENT
  Sex: Female
  Weight: 59.1 kg

DRUGS (19)
  1. CHANTIX [Suspect]
     Indication: SMOKING CESSATION THERAPY
     Dates: start: 20070905
  2. SYNTHROID [Concomitant]
  3. PREMARIN [Concomitant]
  4. DILAUDID [Concomitant]
  5. METHADONE HCL [Concomitant]
  6. ALL OTHER THERAPEUTIC PRODUCTS [Concomitant]
  7. SOMA [Concomitant]
  8. XANAX [Concomitant]
  9. PRILOSEC [Concomitant]
  10. NEXIUM [Concomitant]
  11. DONNATAL [Concomitant]
  12. REGLAN [Concomitant]
  13. SALAGEN [Concomitant]
  14. TRICOR [Concomitant]
  15. CRESTOR [Concomitant]
  16. MAXZIDE [Concomitant]
  17. PROMETHAZINE [Concomitant]
     Indication: NAUSEA
  18. MAXALT [Concomitant]
     Indication: MIGRAINE
  19. MEPERGAN [Concomitant]
     Indication: MIGRAINE

REACTIONS (4)
  - HEADACHE [None]
  - MALAISE [None]
  - MIGRAINE [None]
  - NAUSEA [None]
